FAERS Safety Report 7064183-X (Version None)
Quarter: 2010Q4

REPORT INFORMATION
  Report Type: 
  Country: None (occurrence: None)
  Receive Date: 20101027
  Receipt Date: 20101018
  Transmission Date: 20110411
  Serious: Yes (Other)
  Sender: FDA-Public Use
  Company Number: US-JNJFOC-20100701686

PATIENT
  Age: 74 Year
  Sex: Male
  Weight: 86.18 kg

DRUGS (2)
  1. TAPENTADOL [Suspect]
     Indication: NEUROPATHY PERIPHERAL
     Dosage: 1 TABLET EVERY 4 HOURS
     Route: 065
  2. COUMADIN [Suspect]
     Indication: PRODUCT USED FOR UNKNOWN INDICATION
     Route: 065

REACTIONS (4)
  - BLOOD BLISTER [None]
  - DRUG INEFFECTIVE [None]
  - PAIN IN EXTREMITY [None]
  - RASH MACULAR [None]
